FAERS Safety Report 20758593 (Version 3)
Quarter: 2022Q2

REPORT INFORMATION
  Report Type: Spontaneous
  Country: FI (occurrence: FI)
  Receive Date: 20220427
  Receipt Date: 20220601
  Transmission Date: 20220720
  Serious: Yes (Hospitalization, Other)
  Sender: FDA-Public Use
  Company Number: FI-INDIVIOR LIMITED-INDV-088268-2016

PATIENT
  Age: 21 Year
  Sex: Male

DRUGS (3)
  1. PREGABALIN [Suspect]
     Active Substance: PREGABALIN
     Indication: Product used for unknown indication
     Dosage: UNK, UNKNOWN
     Route: 065
  2. SUBUTEX [Suspect]
     Active Substance: BUPRENORPHINE HYDROCHLORIDE
     Indication: Product used for unknown indication
     Dosage: UNK
     Route: 045
  3. BUPRENORPHINE [Suspect]
     Active Substance: BUPRENORPHINE
     Indication: Product used for unknown indication
     Dosage: UNK
     Route: 045

REACTIONS (9)
  - Rhabdomyolysis [Not Recovered/Not Resolved]
  - Toxicity to various agents [Unknown]
  - Compartment syndrome [Not Recovered/Not Resolved]
  - Quadriparesis [Unknown]
  - Myelopathy [Not Recovered/Not Resolved]
  - Loss of consciousness [Recovered/Resolved]
  - Substance abuse [Not Recovered/Not Resolved]
  - Intentional product use issue [Unknown]
  - Somnolence [Unknown]
